FAERS Safety Report 9981031 (Version 1)
Quarter: 2014Q1

REPORT INFORMATION
  Report Type: Spontaneous
  Country: FR (occurrence: MC)
  Receive Date: 20140307
  Receipt Date: 20140307
  Transmission Date: 20141002
  Serious: Yes (Death, Life-Threatening)
  Sender: FDA-Public Use
  Company Number: MC-JNJFOC-20140216291

PATIENT
  Age: 90 Year
  Sex: Female

DRUGS (1)
  1. RISPERDAL [Suspect]
     Indication: PRODUCT USED FOR UNKNOWN INDICATION
     Route: 048
     Dates: start: 20140124, end: 20140205

REACTIONS (6)
  - Thrombocytopenia [Recovering/Resolving]
  - Diverticulum [Unknown]
  - Epistaxis [Recovering/Resolving]
  - Red blood cell count decreased [Fatal]
  - Coma [Fatal]
  - Ulcer haemorrhage [Unknown]
